FAERS Safety Report 4427477-X (Version None)
Quarter: 2004Q3

REPORT INFORMATION
  Report Type: 
  Country: None (occurrence: None)
  Receive Date: 20040816
  Receipt Date: 20040816
  Transmission Date: 20050211
  Serious: Yes (Other)
  Sender: FDA-Public Use
  Company Number: None

PATIENT
  Age: 52 Year
  Sex: Male
  Weight: 78.4723 kg

DRUGS (1)
  1. ROCEPHIN [Suspect]
     Indication: PNEUMONIA
     Dosage: 1 G IV QD
     Route: 042
     Dates: start: 20040704, end: 20040808

REACTIONS (1)
  - RASH [None]
